FAERS Safety Report 5807778-0 (Version None)
Quarter: 2008Q3

REPORT INFORMATION
  Report Type: 
  Country: None (occurrence: None)
  Receive Date: 20080711
  Receipt Date: 20080701
  Transmission Date: 20090109
  Serious: Yes (Hospitalization)
  Sender: FDA-Public Use
  Company Number: US-PFIZER INC-2008055635

PATIENT
  Sex: Male
  Weight: 100.9 kg

DRUGS (4)
  1. CHANTIX [Suspect]
     Indication: SMOKING CESSATION THERAPY
     Dates: start: 20080401, end: 20080401
  2. CARDIAC THERAPY [Concomitant]
  3. CHOLESTEROL [Concomitant]
  4. LASIX [Concomitant]

REACTIONS (7)
  - CONFUSIONAL STATE [None]
  - DIZZINESS [None]
  - HOMICIDAL IDEATION [None]
  - LOSS OF CONSCIOUSNESS [None]
  - ROAD TRAFFIC ACCIDENT [None]
  - VISUAL ACUITY REDUCED [None]
  - VOMITING [None]
